FAERS Safety Report 18924873 (Version 4)
Quarter: 2022Q1

REPORT INFORMATION
  Report Type: Spontaneous
  Country: CA (occurrence: CA)
  Receive Date: 20210222
  Receipt Date: 20220302
  Transmission Date: 20220424
  Serious: Yes (Hospitalization)
  Sender: FDA-Public Use
  Company Number: CA-BIOMARINAP-CA-2021-135131

PATIENT
  Age: 12 Year
  Sex: Female

DRUGS (6)
  1. LARONIDASE [Suspect]
     Active Substance: LARONIDASE
     Indication: Mucopolysaccharidosis I
     Dosage: 17.4 MG, QW
     Route: 041
     Dates: start: 20081129
  2. CHLORHEXIDINE [Concomitant]
     Active Substance: CHLORHEXIDINE
     Indication: Product used for unknown indication
     Route: 065
  3. SODIUM CHLORIDE [Concomitant]
     Active Substance: SODIUM CHLORIDE
     Indication: Product used for unknown indication
     Dosage: 1 ML
     Route: 065
  4. BENADRYL [Concomitant]
     Active Substance: DIPHENHYDRAMINE HYDROCHLORIDE
     Indication: Premedication
     Dosage: 30 MG
     Route: 042
  5. DIPHENHYDRAMINE [Suspect]
     Active Substance: DIPHENHYDRAMINE
     Indication: Product used for unknown indication
     Dosage: 50 ML; AT THE RATE 120 ML/H
     Route: 041
  6. TYLENOL [Concomitant]
     Active Substance: ACETAMINOPHEN
     Indication: Premedication
     Dosage: 375 MG
     Route: 048

REACTIONS (24)
  - Noninfective sialoadenitis [Not Recovered/Not Resolved]
  - Catheter site swelling [Recovered/Resolved]
  - Catheter site pain [Recovered/Resolved]
  - Stress [Unknown]
  - Catheter site extravasation [Unknown]
  - Burning sensation [Unknown]
  - Discomfort [Unknown]
  - Body temperature increased [Unknown]
  - Middle insomnia [Unknown]
  - Anxiety [Unknown]
  - Stress [Unknown]
  - Crying [Unknown]
  - Catheter site haemorrhage [Recovered/Resolved]
  - Oropharyngeal pain [Not Recovered/Not Resolved]
  - Nasopharyngitis [Recovered/Resolved]
  - Ear infection [Unknown]
  - Urinary tract infection [Unknown]
  - Hyperhidrosis [Unknown]
  - Fatigue [Unknown]
  - Heart rate increased [Recovered/Resolved]
  - Headache [Unknown]
  - Device issue [Unknown]
  - Unintentional medical device removal [Unknown]
  - Arthralgia [Recovering/Resolving]

NARRATIVE: CASE EVENT DATE: 20200130
